FAERS Safety Report 6388687-8 (Version None)
Quarter: 2009Q4

REPORT INFORMATION
  Report Type: 
  Country: None (occurrence: None)
  Receive Date: 20091002
  Receipt Date: 20091002
  Transmission Date: 20100525
  Serious: Yes (Other)
  Sender: FDA-Public Use
  Company Number: None

PATIENT
  Age: 35 Year
  Sex: Female
  Weight: 60.3284 kg

DRUGS (1)
  1. LEVAQUIN 750 TABLET MCNEIL [Suspect]
     Indication: SINUSITIS
     Dosage: 1 TABLET FOR 5 DAY PO
     Route: 048
     Dates: start: 20090930, end: 20091001

REACTIONS (14)
  - ANXIETY [None]
  - ARTHRALGIA [None]
  - CHILLS [None]
  - FATIGUE [None]
  - FEELING ABNORMAL [None]
  - GAIT DISTURBANCE [None]
  - HALLUCINATION, VISUAL [None]
  - HEADACHE [None]
  - INSOMNIA [None]
  - MUSCLE TWITCHING [None]
  - MUSCULOSKELETAL PAIN [None]
  - NIGHTMARE [None]
  - RESTLESSNESS [None]
  - TREMOR [None]
